FAERS Safety Report 6556685-7 (Version None)
Quarter: 2010Q1

REPORT INFORMATION
  Report Type: 
  Country: None (occurrence: None)
  Receive Date: 20100125
  Receipt Date: 20100112
  Transmission Date: 20100710
  Serious: Yes (Death, Disabling, Other)
  Sender: FDA-Public Use
  Company Number: MC201000015

PATIENT

DRUGS (7)
  1. ANGIOMAX [Suspect]
     Indication: ANTICOAGULANT THERAPY
     Dosage: 0.5, 1.75 MG/KG, BOLUS, INTRAVENOUS
     Route: 040
  2. VISIPAQUE (IODINE, IODIXANOL) [Concomitant]
  3. SODIUM CHLORIDE [Concomitant]
  4. BICARBONATE (SODIUM BICARBONATE) [Concomitant]
  5. ACETYLCYSTEINE [Concomitant]
  6. PLAVIX [Concomitant]
  7. ASPIRIN [Concomitant]

REACTIONS (6)
  - ARTERIAL OCCLUSIVE DISEASE [None]
  - LEG AMPUTATION [None]
  - MEDICAL DEVICE COMPLICATION [None]
  - PERIPHERAL REVASCULARISATION [None]
  - THROMBOSIS IN DEVICE [None]
  - VASCULAR GRAFT [None]
